FAERS Safety Report 16069248 (Version 1)
Quarter: 2019Q1

REPORT INFORMATION
  Report Type: Spontaneous
  Country: US (occurrence: US)
  Receive Date: 20190313
  Receipt Date: 20190313
  Transmission Date: 20190418
  Serious: Yes (Other)
  Sender: FDA-Public Use
  Company Number: PHHY2019US050689

PATIENT

DRUGS (1)
  1. DIGOXIN. [Suspect]
     Active Substance: DIGOXIN
     Indication: PRODUCT USED FOR UNKNOWN INDICATION
     Dosage: UNK
     Route: 048
     Dates: start: 2013

REACTIONS (3)
  - Toxicity to various agents [Recovering/Resolving]
  - End stage renal disease [Recovering/Resolving]
  - Cardioactive drug level increased [Recovering/Resolving]

NARRATIVE: CASE EVENT DATE: 2013
